FAERS Safety Report 17319806 (Version 1)
Quarter: 2020Q1

REPORT INFORMATION
  Report Type: Report from Study
  Country: US (occurrence: US)
  Receive Date: 20200125
  Receipt Date: 20200125
  Transmission Date: 20200409
  Serious: Yes (Hospitalization, Other)
  Sender: FDA-Public Use
  Company Number: US-TAKEDA-2020TUS003814

PATIENT
  Sex: Female
  Weight: 93 kg

DRUGS (1)
  1. BRIGATINIB [Suspect]
     Active Substance: BRIGATINIB
     Indication: NON-SMALL CELL LUNG CANCER
     Dosage: UNK
     Route: 065

REACTIONS (11)
  - Pain [Unknown]
  - Insomnia [Unknown]
  - Somnolence [Unknown]
  - Depression [Unknown]
  - Fatigue [Unknown]
  - Dry mouth [Unknown]
  - Dyspnoea [Unknown]
  - Gait disturbance [Unknown]
  - Cough [Unknown]
  - Depressed mood [Unknown]
  - Metastases to central nervous system [Unknown]
